FAERS Safety Report 19828764 (Version 4)
Quarter: 2022Q3

REPORT INFORMATION
  Report Type: Report from Study
  Country: AR (occurrence: AR)
  Receive Date: 20210914
  Receipt Date: 20220708
  Transmission Date: 20221027
  Serious: Yes (Hospitalization)
  Sender: FDA-Public Use
  Company Number: PHHY2019AR082960

PATIENT
  Age: 33 Year
  Sex: Female

DRUGS (3)
  1. GILENYA [Suspect]
     Active Substance: FINGOLIMOD HYDROCHLORIDE
     Indication: Multiple sclerosis
     Dosage: 0.5 MG, QD
     Route: 048
     Dates: start: 20181114
  2. GILENYA [Suspect]
     Active Substance: FINGOLIMOD HYDROCHLORIDE
     Dosage: 0.5 MG, QD
     Route: 065
  3. LIORESAL [Suspect]
     Active Substance: BACLOFEN
     Indication: Muscle spasticity
     Dosage: UNK
     Route: 065

REACTIONS (13)
  - Gait disturbance [Unknown]
  - Limb discomfort [Unknown]
  - Fall [Unknown]
  - Ligament sprain [Unknown]
  - Dysstasia [Unknown]
  - Blood iron decreased [Recovering/Resolving]
  - Balance disorder [Not Recovered/Not Resolved]
  - Memory impairment [Unknown]
  - Red blood cell count abnormal [Unknown]
  - Haematocrit decreased [Unknown]
  - Haemoglobin decreased [Unknown]
  - Muscle spasticity [Unknown]
  - Anaemia [Unknown]

NARRATIVE: CASE EVENT DATE: 20190114
